FAERS Safety Report 24047893 (Version 3)
Quarter: 2024Q4

REPORT INFORMATION
  Report Type: Spontaneous
  Country: DE (occurrence: DE)
  Receive Date: 20240703
  Receipt Date: 20241120
  Transmission Date: 20250114
  Serious: Yes (Hospitalization)
  Sender: MERCK
  Company Number: DE-SAMSUNG BIOEPIS-SB-2024-15306

PATIENT
  Age: 47 Year
  Sex: Male
  Weight: 78.8 kg

DRUGS (14)
  1. PEMBROLIZUMAB [Suspect]
     Active Substance: PEMBROLIZUMAB
     Indication: Oesophageal adenocarcinoma stage 0
     Dosage: 200 MG FLAT DOSE, IV, D1/D22/D43 PRE AND POST OP, AFTERWARDS D1 Q3W
     Route: 042
     Dates: start: 20230526
  2. PEMBROLIZUMAB [Suspect]
     Active Substance: PEMBROLIZUMAB
     Dosage: 200 MG FLAT DOSE, IV, D1/D22/D43 PRE AND POST OP, AFTERWARDS D1 Q3W
     Route: 042
     Dates: start: 20240424
  3. FLUOROURACIL [Suspect]
     Active Substance: FLUOROURACIL
     Indication: Oesophageal adenocarcinoma stage 0
     Dosage: 2600MG/M2, IV, D1/D15/D29 AND D43 PRE AND POST OP
     Route: 042
     Dates: start: 20230526
  4. FLUOROURACIL [Suspect]
     Active Substance: FLUOROURACIL
     Dosage: 2600MG/M2, IV, D1/D15/D29 AND D43 PRE AND POST OP
     Route: 042
     Dates: start: 20240424
  5. DOCETAXEL [Suspect]
     Active Substance: DOCETAXEL
     Indication: Oesophageal adenocarcinoma stage 0
     Dosage: 50MG/M?, IV, D1/D15/D29 AND D/43 PRE AND POST OP
     Route: 042
     Dates: start: 20230526
  6. DOCETAXEL [Suspect]
     Active Substance: DOCETAXEL
     Dosage: 50MG, IV, D1/D15/D29 AND D/43 PRE AND POST OP
     Route: 042
     Dates: start: 20240424
  7. OXALIPLATIN [Suspect]
     Active Substance: OXALIPLATIN
     Indication: Oesophageal adenocarcinoma stage 0
     Dosage: 85MG/M2, IV, D1/D16/D29 AND D43 PRE AND POST OP
     Route: 042
  8. OXALIPLATIN [Suspect]
     Active Substance: OXALIPLATIN
     Dosage: 85 MG, IV, D1/D16/D29 AND D43 PRE AND POST OP
     Route: 042
  9. LEUCOVORIN [Suspect]
     Active Substance: LEUCOVORIN\LEUCOVORIN CALCIUM
     Indication: Oesophageal adenocarcinoma stage 0
     Dosage: 200MG/M?, IV, D1/D15/D29 AND D43 PRE AND POST OP
     Route: 042
     Dates: start: 20230526
  10. LEUCOVORIN [Suspect]
     Active Substance: LEUCOVORIN\LEUCOVORIN CALCIUM
     Dosage: 200MG, IV, D1/D15/D29 AND D43 PRE AND POST OP
     Route: 042
     Dates: start: 20240424
  11. ONTRUZANT [Suspect]
     Active Substance: TRASTUZUMAB-DTTB
     Indication: Oesophageal adenocarcinoma stage 0
     Dosage: 200 MG FLAT DOSE, IV, D1/D22/D43 PRE AND POST OP, AFTERWARDS D1 Q3W
     Route: 042
     Dates: start: 20230528
  12. ONTRUZANT [Suspect]
     Active Substance: TRASTUZUMAB-DTTB
     Dosage: 200 MG FIRST DOSE, IV, D1/D22/D43 PRE AND POST OP, AFTERWARDS D1 Q3W
     Route: 042
     Dates: start: 20240424
  13. ONTRUZANT [Suspect]
     Active Substance: TRASTUZUMAB-DTTB
     Dosage: D1: 8MG/KG, IV D22/D43 PRE AND POST OP, AFTERWARDS 6MG/KG IV D1 Q3W
     Route: 042
     Dates: start: 20230526
  14. ONTRUZANT [Suspect]
     Active Substance: TRASTUZUMAB-DTTB
     Dosage: D1: 8MG/KG, IV D22/D43 PRE AND POST OP, AFTERWARDS 6MG/KG IV D1 Q3W
     Route: 042
     Dates: start: 20240424

REACTIONS (6)
  - Infection [Recovered/Resolved]
  - Pyrexia [Recovered/Resolved]
  - Diarrhoea [Recovered/Resolved]
  - Arthralgia [Not Recovered/Not Resolved]
  - Surgery [Recovered/Resolved]
  - Off label use [Unknown]

NARRATIVE: CASE EVENT DATE: 20230830
